FAERS Safety Report 5730391-0 (Version None)
Quarter: 2008Q2

REPORT INFORMATION
  Report Type: 
  Country: None (occurrence: None)
  Receive Date: 20080502
  Receipt Date: 20080421
  Transmission Date: 20081010
  Serious: Yes (Other)
  Sender: FDA-Public Use
  Company Number: 2008EU000762

PATIENT
  Age: 78 Year
  Sex: Female

DRUGS (8)
  1. VESICARE [Suspect]
     Indication: URINARY INCONTINENCE
     Dosage: 1 DF, UID/QD ORAL
     Route: 048
     Dates: start: 20080313, end: 20080326
  2. TOLTERODINE TARTRATE [Concomitant]
  3. ESTRADIOL (ESTRADIOL VALERATE) [Concomitant]
  4. HIRUDOID (HEPARINOID) [Concomitant]
  5. NITROFURANTOIN [Concomitant]
  6. PANTOPRAZOLE SODIUM [Concomitant]
  7. RAMIPRIL [Concomitant]
  8. SERTRALINE [Concomitant]

REACTIONS (1)
  - DIARRHOEA [None]
